FAERS Safety Report 10089785 (Version 1)
Quarter: 2014Q2

REPORT INFORMATION
  Report Type: Spontaneous
  Country: IT (occurrence: IT)
  Receive Date: 20140421
  Receipt Date: 20140421
  Transmission Date: 20141212
  Serious: Yes (Death)
  Sender: FDA-Public Use
  Company Number: IT-ACTAVIS-2014-07435

PATIENT
  Age: 26 Year
  Sex: Male

DRUGS (6)
  1. CITALOPRAM (UNKNOWN) [Suspect]
     Indication: DRUG ABUSE
     Dosage: UNK
     Route: 065
  2. MORPHINE (UNKNOWN) [Suspect]
     Indication: DRUG ABUSE
     Dosage: UNK
     Route: 065
  3. CAFFEINE (UNKNOWN) [Interacting]
     Indication: DRUG ABUSE
     Dosage: UNK
     Route: 042
  4. CODEINE (UNKNOWN) [Suspect]
     Indication: DRUG ABUSE
     Dosage: UNK
     Route: 065
  5. PARACETAMOL  (UNKNOWN) [Suspect]
     Indication: DRUG ABUSE
     Dosage: UNK
     Route: 065
  6. HEROIN [Suspect]
     Indication: DRUG ABUSE
     Dosage: UNK
     Route: 065

REACTIONS (6)
  - Cardiac failure acute [Fatal]
  - Pulmonary oedema [Fatal]
  - Pulmonary alveolar haemorrhage [Fatal]
  - Drug abuse [Fatal]
  - Overdose [Fatal]
  - Drug interaction [Fatal]
